FAERS Safety Report 15681631 (Version 1)
Quarter: 2018Q4

REPORT INFORMATION
  Report Type: Spontaneous
  Country: CN (occurrence: CN)
  Receive Date: 20181203
  Receipt Date: 20181203
  Transmission Date: 20190205
  Serious: Yes (Death, Other)
  Sender: FDA-Public Use
  Company Number: CN-ELI_LILLY_AND_COMPANY-CN201811013090

PATIENT
  Age: 58 Year
  Sex: Female

DRUGS (4)
  1. PEMETREXED. [Suspect]
     Active Substance: PEMETREXED
     Indication: PLEURAL MESOTHELIOMA MALIGNANT
     Dosage: UNK, CYCLICAL
     Route: 065
     Dates: start: 201512
  2. APATINIB [Suspect]
     Active Substance: APATINIB
     Indication: PLEURAL MESOTHELIOMA MALIGNANT
     Dosage: UNK, CYCLICAL
     Route: 065
  3. GEMCITABINE HYDROCHLORIDE. [Suspect]
     Active Substance: GEMCITABINE HYDROCHLORIDE
     Indication: PLEURAL MESOTHELIOMA MALIGNANT
     Dosage: UNK, CYCLICAL
     Route: 065
  4. CISPLATIN. [Suspect]
     Active Substance: CISPLATIN
     Indication: PLEURAL MESOTHELIOMA MALIGNANT
     Dosage: UNK, CYCLICAL
     Route: 065
     Dates: start: 201512

REACTIONS (9)
  - Chest pain [Unknown]
  - Treatment failure [Unknown]
  - Proteinuria [Unknown]
  - Palmar-plantar erythrodysaesthesia syndrome [Unknown]
  - Malignant neoplasm progression [Unknown]
  - Anaemia [Unknown]
  - Death [Fatal]
  - Hypertension [Unknown]
  - Fatigue [Unknown]

NARRATIVE: CASE EVENT DATE: 20170311
